FAERS Safety Report 8194817-8 (Version None)
Quarter: 2012Q1

REPORT INFORMATION
  Report Type: 
  Country: None (occurrence: None)
  Receive Date: 20120308
  Receipt Date: 20110412
  Transmission Date: 20120608
  Serious: No
  Sender: FDA-Public Use
  Company Number: US-GLAXOSMITHKLINE-A0922647A

PATIENT
  Age: 20 Year
  Sex: Male

DRUGS (1)
  1. NICORETTE (MINT) [Suspect]
     Indication: EX-TOBACCO USER
     Dates: start: 20110408, end: 20110408

REACTIONS (6)
  - HYPERHIDROSIS [None]
  - DYSPNOEA [None]
  - HYPERSENSITIVITY [None]
  - FEELING HOT [None]
  - THROAT IRRITATION [None]
  - PHARYNGEAL OEDEMA [None]
